FAERS Safety Report 10270671 (Version 6)
Quarter: 2014Q4

REPORT INFORMATION
  Report Type: Report from Study
  Country: US (occurrence: US)
  Receive Date: 20140701
  Receipt Date: 20141222
  Transmission Date: 20150528
  Serious: Yes (Death, Hospitalization)
  Sender: FDA-Public Use
  Company Number: US-ACTELION-A-NJ2014-100963

PATIENT
  Age: 83 Year
  Sex: Male

DRUGS (3)
  1. TRACLEER [Suspect]
     Active Substance: BOSENTAN\BOSENTAN MONOHYDRATE
     Dosage: 62.5 MG, QD
     Route: 048
     Dates: start: 200910, end: 200911
  2. SILDENAFIL. [Concomitant]
     Active Substance: SILDENAFIL
  3. TRACLEER [Suspect]
     Active Substance: BOSENTAN\BOSENTAN MONOHYDRATE
     Indication: PULMONARY ARTERIAL HYPERTENSION
     Dosage: 125 MG, BID
     Route: 048
     Dates: start: 200911, end: 20141105

REACTIONS (8)
  - Cardiac failure congestive [Recovered/Resolved]
  - Chronic respiratory failure [Recovered/Resolved]
  - Acute respiratory failure [Recovering/Resolving]
  - Death [Fatal]
  - Chronic obstructive pulmonary disease [Unknown]
  - Hypoxia [Recovered/Resolved]
  - Pneumonia [Recovered/Resolved]
  - Respiratory distress [Recovered/Resolved]

NARRATIVE: CASE EVENT DATE: 20140923
